FAERS Safety Report 10529116 (Version 2)
Quarter: 2014Q4

REPORT INFORMATION
  Report Type: Spontaneous
  Country: US (occurrence: None)
  Receive Date: 20141002
  Receipt Date: 20141020
  Transmission Date: 20150528
  Serious: Yes (Hospitalization, Disabling)
  Sender: FDA-Public Use
  Company Number: GBI002567

PATIENT
  Age: 62 Year
  Sex: Female

DRUGS (10)
  1. LEVOPHED [Concomitant]
     Active Substance: NOREPINEPHRINE BITARTRATE
  2. METFORMIN [Concomitant]
     Active Substance: METFORMIN HYDROCHLORIDE
  3. NEURONTIN [Concomitant]
     Active Substance: GABAPENTIN
  4. PROFILNINE SD [Suspect]
     Active Substance: FACTOR IX COMPLEX
     Indication: FACTOR IX DEFICIENCY
     Dates: start: 20130920, end: 20131004
  5. AMBIEN [Concomitant]
     Active Substance: ZOLPIDEM TARTRATE
  6. SIMVASTATIN. [Concomitant]
     Active Substance: SIMVASTATIN
  7. IMITREX [Concomitant]
     Active Substance: SUMATRIPTAN\SUMATRIPTAN SUCCINATE
  8. CELEBREX [Concomitant]
     Active Substance: CELECOXIB
  9. QUININE [Concomitant]
     Active Substance: QUININE
  10. XANAX [Concomitant]
     Active Substance: ALPRAZOLAM

REACTIONS (3)
  - Toe amputation [None]
  - Disseminated intravascular coagulation [None]
  - Deep vein thrombosis [None]

NARRATIVE: CASE EVENT DATE: 20131004
